FAERS Safety Report 24743651 (Version 1)
Quarter: 2024Q4

REPORT INFORMATION
  Report Type: Spontaneous
  Country: JP (occurrence: JP)
  Receive Date: 20241217
  Receipt Date: 20241217
  Transmission Date: 20250115
  Serious: Yes (Other)
  Sender: OTSUKA
  Company Number: JP-OTSUKA-2024_033581

PATIENT
  Age: 7 Decade
  Sex: Female

DRUGS (2)
  1. REXULTI [Suspect]
     Active Substance: BREXPIPRAZOLE
     Indication: Dementia Alzheimer^s type
     Dosage: UNK
     Route: 048
  2. REXULTI [Suspect]
     Active Substance: BREXPIPRAZOLE
     Indication: Agitation

REACTIONS (2)
  - Asphyxia [Recovered/Resolved]
  - Pneumonia aspiration [Recovered/Resolved]
